FAERS Safety Report 16157366 (Version 1)
Quarter: 2019Q2

REPORT INFORMATION
  Report Type: Spontaneous
  Country: US (occurrence: US)
  Receive Date: 20190404
  Receipt Date: 20190404
  Transmission Date: 20190711
  Serious: No
  Sender: FDA-Public Use
  Company Number: US-PFIZER INC-2019142780

PATIENT
  Age: 72 Year
  Sex: Female

DRUGS (4)
  1. LATANOPROST. [Suspect]
     Active Substance: LATANOPROST
     Indication: GLAUCOMA
     Dosage: 1 GTT, 1X/DAY (ONE DROP EACH NIGHT TO RIGHT EYE)
     Route: 047
  2. METHOTREXATE. [Concomitant]
     Active Substance: METHOTREXATE
  3. HUMIRA [Concomitant]
     Active Substance: ADALIMUMAB
  4. AZOPT [Suspect]
     Active Substance: BRINZOLAMIDE
     Dosage: UNK, 2X/DAY (ONCE AT NIGHT, AND ONCE IN THE MORNING)

REACTIONS (2)
  - Illusion [Unknown]
  - Back pain [Unknown]
